FAERS Safety Report 25835767 (Version 1)
Quarter: 2025Q3

REPORT INFORMATION
  Report Type: Spontaneous
  Country: CN (occurrence: CN)
  Receive Date: 20250923
  Receipt Date: 20250923
  Transmission Date: 20251021
  Serious: Yes (Other)
  Sender: TAKEDA
  Company Number: CN-JNJFOC-20250913794

PATIENT
  Age: 72 Year
  Sex: Female
  Weight: 51 kg

DRUGS (5)
  1. VELCADE [Suspect]
     Active Substance: BORTEZOMIB
     Indication: Plasma cell myeloma
  2. DARZALEX [Suspect]
     Active Substance: DARATUMUMAB
     Indication: Plasma cell myeloma
  3. DEXAMETHASONE [Concomitant]
     Active Substance: DEXAMETHASONE
     Indication: Premedication
  4. ACETAMINOPHEN [Concomitant]
     Active Substance: ACETAMINOPHEN
     Indication: Premedication
  5. LORATADINE [Concomitant]
     Active Substance: LORATADINE
     Indication: Premedication

REACTIONS (4)
  - Infusion related reaction [Recovering/Resolving]
  - Tachypnoea [Unknown]
  - Dysphonia [Unknown]
  - Respiration abnormal [Unknown]

NARRATIVE: CASE EVENT DATE: 20230809
